FAERS Safety Report 14135033 (Version 1)
Quarter: 2017Q4

REPORT INFORMATION
  Report Type: Spontaneous
  Country: IT (occurrence: IT)
  Receive Date: 20171027
  Receipt Date: 20171027
  Transmission Date: 20180321
  Serious: Yes (Hospitalization, Other)
  Sender: FDA-Public Use
  Company Number: IT-TEVA-819628ACC

PATIENT
  Age: 85 Year
  Sex: Male

DRUGS (6)
  1. CALCIJEX [Concomitant]
     Active Substance: CALCITRIOL
     Route: 065
  2. RYTMONORM [Concomitant]
     Active Substance: PROPAFENONE
     Dosage: 300 MILLIGRAM DAILY;
     Route: 065
  3. LAXIPEG [Concomitant]
     Dosage: 2 DOSAGE FORMS DAILY;
     Route: 065
  4. QUETIAPINE AUROBINDO FILM-COATED TABLETS 25MG [Suspect]
     Active Substance: QUETIAPINE
     Indication: PSYCHOTIC DISORDER
     Dosage: 50 MILLIGRAM DAILY;
     Route: 048
     Dates: start: 20150311, end: 20170724
  5. RIVOTRIL [Interacting]
     Active Substance: CLONAZEPAM
     Indication: EPILEPSY
     Dosage: 3 GTT DAILY;
     Route: 048
  6. CARDIOASPIRIN [Concomitant]
     Active Substance: ASPIRIN

REACTIONS (3)
  - Drug interaction [Unknown]
  - Sopor [Recovered/Resolved]
  - Depressed level of consciousness [Recovered/Resolved]

NARRATIVE: CASE EVENT DATE: 20170724
